FAERS Safety Report 7913531-4 (Version None)
Quarter: 2011Q4

REPORT INFORMATION
  Report Type: 
  Country: None (occurrence: None)
  Receive Date: 20111110
  Receipt Date: 20111028
  Transmission Date: 20120403
  Serious: Yes (Other)
  Sender: FDA-Public Use
  Company Number: MC201100285

PATIENT
  Age: 84 Year
  Sex: Male
  Weight: 54.4 kg

DRUGS (2)
  1. ANGIOMAX [Suspect]
     Indication: PERIPHERAL ARTERY ANGIOPLASTY
     Dosage: 0.75 MG/KG, BOLUS, INTRAVENOUS ; 1.75 MG/KG, HR , INTRAVENOUS
     Route: 042
     Dates: start: 20110120, end: 20110120
  2. ANGIOMAX [Suspect]
     Indication: PERIPHERAL ARTERY ANGIOPLASTY
     Dosage: 0.75 MG/KG, BOLUS, INTRAVENOUS ; 1.75 MG/KG, HR , INTRAVENOUS
     Route: 042
     Dates: start: 20110120

REACTIONS (2)
  - THROMBOSIS [None]
  - OFF LABEL USE [None]
